FAERS Safety Report 15689827 (Version 1)
Quarter: 2018Q4

REPORT INFORMATION
  Report Type: Spontaneous
  Country: RO (occurrence: RO)
  Receive Date: 20181205
  Receipt Date: 20181205
  Transmission Date: 20190205
  Serious: Yes (Other)
  Sender: FDA-Public Use
  Company Number: PHHY2018RO171171

PATIENT
  Age: 71 Year
  Sex: Male
  Weight: 65 kg

DRUGS (2)
  1. PACLITAXEL. [Suspect]
     Active Substance: PACLITAXEL
     Indication: PRODUCT USED FOR UNKNOWN INDICATION
     Dosage: UNK
     Route: 065
  2. CYRAMZA [Suspect]
     Active Substance: RAMUCIRUMAB
     Indication: ADENOCARCINOMA
     Dosage: UNK
     Route: 065

REACTIONS (13)
  - Metastases to liver [Unknown]
  - Disease progression [Unknown]
  - Tumour haemorrhage [Unknown]
  - Constipation [Recovered/Resolved]
  - Weight decreased [Recovered/Resolved]
  - Fatigue [Recovered/Resolved]
  - Metastases to lung [Unknown]
  - Alopecia [Recovered/Resolved]
  - Gastrointestinal haemorrhage [Unknown]
  - Neutropenia [Recovered/Resolved]
  - Paraesthesia [Recovered/Resolved]
  - Anaemia [Unknown]
  - Nausea [Recovered/Resolved]
